FAERS Safety Report 7096990-1 (Version None)
Quarter: 2010Q4

REPORT INFORMATION
  Report Type: 
  Country: None (occurrence: None)
  Receive Date: 20101111
  Receipt Date: 20101027
  Transmission Date: 20110411
  Serious: Yes (Death, Hospitalization)
  Sender: FDA-Public Use
  Company Number: US-AMGEN-USASP2010001510

PATIENT

DRUGS (4)
  1. NEUPOGEN [Suspect]
     Indication: CHEMOTHERAPY
     Dosage: 6.6 A?G/KG, QD
     Route: 042
     Dates: start: 19910826, end: 19910906
  2. IFEX                               /00310701/ [Suspect]
     Indication: OVARIAN CANCER
     Dosage: UNK
     Route: 033
     Dates: start: 19910820, end: 19910821
  3. PARAPLATIN [Suspect]
     Indication: OVARIAN CANCER
     Dosage: UNK UNK, QD
     Route: 033
     Dates: start: 19910820, end: 19910821
  4. METOCLOPRAMIDE [Concomitant]
     Dosage: UNK
     Dates: start: 19910820, end: 19910906

REACTIONS (3)
  - GRANULOCYTOPENIA [None]
  - OVARIAN CANCER [None]
  - THERAPEUTIC RESPONSE DECREASED [None]
